FAERS Safety Report 19256120 (Version 1)
Quarter: 2021Q2

REPORT INFORMATION
  Report Type: Spontaneous
  Country: US (occurrence: US)
  Receive Date: 20210514
  Receipt Date: 20210514
  Transmission Date: 20210717
  Serious: Yes (Hospitalization)
  Sender: FDA-Public Use
  Company Number: US-QUAGEN-2021QUALIT00033

PATIENT
  Age: 9 Year
  Sex: Male

DRUGS (4)
  1. DIPHENHYDRAMINE. [Interacting]
     Active Substance: DIPHENHYDRAMINE
     Indication: DYSTONIA
     Route: 065
  2. GUANFACINE. [Concomitant]
     Active Substance: GUANFACINE
     Indication: ATTENTION DEFICIT HYPERACTIVITY DISORDER
     Route: 065
  3. METHYLPHENIDATE HYDROCHLORIDE. [Suspect]
     Active Substance: METHYLPHENIDATE HYDROCHLORIDE
     Indication: ATTENTION DEFICIT HYPERACTIVITY DISORDER
     Route: 065
  4. BENZATROPINE [Interacting]
     Active Substance: BENZTROPINE
     Indication: DYSTONIA
     Route: 030

REACTIONS (1)
  - Oromandibular dystonia [Recovered/Resolved]
